FAERS Safety Report 8860260 (Version 1)
Quarter: 2012Q4

REPORT INFORMATION
  Report Type: 
  Country: US (occurrence: US)
  Receive Date: 20121025
  Receipt Date: 20121025
  Transmission Date: 20130627
  Serious: Yes (Other)
  Sender: FDA-Public Use
  Company Number: PHEH2012US020936

PATIENT
  Sex: Male

DRUGS (2)
  1. AREDIA [Suspect]
     Indication: BONE DISORDER
     Dosage: 90 mg, UNK
     Route: 042
     Dates: start: 1999, end: 2002
  2. THALIDOMIDE [Concomitant]

REACTIONS (3)
  - Bone lesion [Unknown]
  - Tooth fracture [Unknown]
  - Skin mass [Unknown]
